FAERS Safety Report 14632840 (Version 1)
Quarter: 2018Q1

REPORT INFORMATION
  Report Type: Spontaneous
  Country: TR (occurrence: TR)
  Receive Date: 20180313
  Receipt Date: 20180313
  Transmission Date: 20180509
  Serious: Yes (Hospitalization, Other)
  Sender: FDA-Public Use
  Company Number: TR-TEVA-2018-TR-869180

PATIENT
  Age: 65 Year
  Sex: Female
  Weight: 40 kg

DRUGS (5)
  1. TAZOJECT [Concomitant]
     Indication: BACTERIAL INFECTION
     Dosage: 18 GRAM DAILY; UNKNOWN FORM STRENGTH
     Route: 042
     Dates: start: 20180206
  2. CANDISEPT [Concomitant]
     Indication: OESOPHAGEAL CANDIDIASIS
     Dosage: 400 MILLIGRAM DAILY; UNKNOWN FORM STRENGTH
     Route: 042
     Dates: start: 20180207
  3. LASIX [Concomitant]
     Active Substance: FUROSEMIDE
     Indication: HYPERVOLAEMIA
     Dosage: 40 MILLIGRAM DAILY; UNKNOWN FORM STRENGTH
     Route: 048
     Dates: start: 20180206
  4. TEVAGRASTIM [Suspect]
     Active Substance: FILGRASTIM
     Indication: NEUTROPENIA
     Dosage: TEVAGRASTIM 30 MIU/0.5 ML
     Route: 058
     Dates: start: 20180207
  5. TEVAGRASTIM [Suspect]
     Active Substance: FILGRASTIM
     Indication: NEUTROPENIA
     Dosage: TEVAGRASTIM 48 MIU/0.8 ML
     Route: 058
     Dates: end: 20180212

REACTIONS (2)
  - Bone marrow failure [Not Recovered/Not Resolved]
  - Drug ineffective [Not Recovered/Not Resolved]

NARRATIVE: CASE EVENT DATE: 20180207
